FAERS Safety Report 19951937 (Version 1)
Quarter: 2021Q4

REPORT INFORMATION
  Report Type: Spontaneous
  Country: DE (occurrence: DE)
  Receive Date: 20211013
  Receipt Date: 20211013
  Transmission Date: 20220303
  Serious: Yes (Hospitalization)
  Sender: FDA-Public Use
  Company Number: DE-ADRED-06711-01

PATIENT
  Age: 71 Year
  Sex: Male

DRUGS (6)
  1. CANDESARTAN CILEXETIL\HYDROCHLOROTHIAZIDE [Suspect]
     Active Substance: CANDESARTAN CILEXETIL\HYDROCHLOROTHIAZIDE
     Indication: Product used for unknown indication
     Dosage: 16|12.5 MG, QD (1-0-0-0)
     Route: 048
  2. DABIGATRAN [Suspect]
     Active Substance: DABIGATRAN
     Indication: Product used for unknown indication
     Dosage: 110 MILLIGRAM, QD (2-0-0-0)
     Route: 048
  3. CILOSTAZOL [Suspect]
     Active Substance: CILOSTAZOL
     Indication: Product used for unknown indication
     Dosage: 50 MILLIGRAM, BID (1-0-1-0)
     Route: 048
  4. ATORVASTATIN [Concomitant]
     Active Substance: ATORVASTATIN
     Dosage: 10 MILLIGRAM, QD (0-0-1-0)
     Route: 048
  5. AMLODIPINE BESYLATE [Concomitant]
     Active Substance: AMLODIPINE BESYLATE
     Dosage: 10 MILLIGRAM, QD (0-0-1-0)
     Route: 048
  6. ESOMEPRAZOLE [Concomitant]
     Active Substance: ESOMEPRAZOLE
     Dosage: 20 MILLIGRAM, QD (1-0-0-0)
     Route: 048

REACTIONS (7)
  - Fatigue [Unknown]
  - Abdominal pain upper [Unknown]
  - Dyspnoea [Unknown]
  - General physical health deterioration [Unknown]
  - Nausea [Unknown]
  - Dizziness [Unknown]
  - Contraindicated product administered [Unknown]
